FAERS Safety Report 4478242-9 (Version None)
Quarter: 2004Q3

REPORT INFORMATION
  Report Type: 
  Country: None (occurrence: None)
  Receive Date: 20040923
  Receipt Date: 20040726
  Transmission Date: 20050211
  Serious: No
  Sender: FDA-Public Use
  Company Number: USA040773704

PATIENT
  Age: 69 Year
  Sex: Female

DRUGS (2)
  1. FORTEO [Suspect]
     Dates: start: 20040701
  2. PERCOCET [Concomitant]

REACTIONS (4)
  - ARTHRALGIA [None]
  - FATIGUE [None]
  - HEADACHE [None]
  - MYALGIA [None]
